FAERS Safety Report 21179970 (Version 1)
Quarter: 2022Q3

REPORT INFORMATION
  Report Type: Spontaneous
  Country: DE (occurrence: DE)
  Receive Date: 20220805
  Receipt Date: 20220805
  Transmission Date: 20221027
  Serious: Yes (Hospitalization)
  Sender: FDA-Public Use
  Company Number: DE-MALLINCKRODT-T202203962

PATIENT
  Age: 53 Year
  Sex: Female
  Weight: 70 kg

DRUGS (9)
  1. UVADEX [Suspect]
     Active Substance: METHOXSALEN
     Indication: Cutaneous T-cell lymphoma
     Dosage: UNK, 4 WEEKLY, (EXTRACORPOREAL)
     Route: 050
     Dates: start: 20130411, end: 201411
  2. UVADEX [Suspect]
     Active Substance: METHOXSALEN
     Dosage: UNK, 4 WEEKLY (EXTRACORPOREAL)
     Route: 050
     Dates: start: 20190510, end: 20191012
  3. TARGRETIN [Concomitant]
     Active Substance: BEXAROTENE
     Indication: Cutaneous T-cell lymphoma
     Dosage: 6 DOSAGE FORM, QD (6-0-0-0)
     Route: 065
     Dates: start: 2013, end: 202106
  4. HEPARIN [Concomitant]
     Active Substance: HEPARIN SODIUM
     Indication: Anticoagulant therapy
     Dosage: UNK
     Route: 065
  5. BITOSEN [Concomitant]
     Indication: Product used for unknown indication
     Dosage: 20 MILLIGRAM, BID (0-1-1-0)
     Route: 065
  6. FENOFIBRATE [Concomitant]
     Active Substance: FENOFIBRATE
     Indication: Product used for unknown indication
     Dosage: 250 MILLIGRAM, QD (1-0-0-0)
     Route: 065
  7. GABAPENTIN [Concomitant]
     Active Substance: GABAPENTIN
     Indication: Product used for unknown indication
     Dosage: 300 MILLIGRAM, TID (1-1-1-0)
     Route: 065
  8. LEVOTHYROXINE SODIUM [Concomitant]
     Active Substance: LEVOTHYROXINE SODIUM
     Indication: Product used for unknown indication
     Dosage: 0.075 MILLIGRAM, QD (1-0-0-0)
     Route: 065
  9. OMACOR [Concomitant]
     Active Substance: OMEGA-3-ACID ETHYL ESTERS
     Indication: Product used for unknown indication
     Dosage: 90, 1000 MG, QD (0-0-1-0)
     Route: 065

REACTIONS (2)
  - Endocarditis [Recovered/Resolved]
  - Device related sepsis [Recovered/Resolved]

NARRATIVE: CASE EVENT DATE: 20191018
